FAERS Safety Report 5060795-3 (Version None)
Quarter: 2006Q3

REPORT INFORMATION
  Report Type: 
  Country: None (occurrence: None)
  Receive Date: 20060725
  Receipt Date: 20060714
  Transmission Date: 20061208
  Serious: Yes (Death, Life-Threatening, Hospitalization)
  Sender: FDA-Public Use
  Company Number: US-JNJFOC-20060302705

PATIENT
  Sex: Female
  Weight: 62.6 kg

DRUGS (5)
  1. YONDELIS [Suspect]
     Indication: OVARIAN CANCER
     Route: 042
  2. DOXIL [Suspect]
     Indication: OVARIAN CANCER
     Route: 042
  3. PROTONIX [Concomitant]
  4. AMBIEN [Concomitant]
  5. MARINOL [Concomitant]

REACTIONS (10)
  - ARTERIAL THROMBOSIS LIMB [None]
  - CARDIAC ARREST [None]
  - DEHYDRATION [None]
  - ELECTROMECHANICAL DISSOCIATION [None]
  - HYPOXIA [None]
  - PANCYTOPENIA [None]
  - RENAL FAILURE ACUTE [None]
  - RESPIRATORY FAILURE [None]
  - SEPSIS [None]
  - URINARY TRACT INFECTION [None]
